FAERS Safety Report 13702058 (Version 1)
Quarter: 2017Q2

REPORT INFORMATION
  Report Type: Spontaneous
  Country: US (occurrence: US)
  Receive Date: 20170629
  Receipt Date: 20170629
  Transmission Date: 20170830
  Serious: No
  Sender: FDA-Public Use
  Company Number: US-JNJFOC-20161008695

PATIENT
  Age: 64 Year
  Sex: Female
  Weight: 68.04 kg

DRUGS (2)
  1. NIZORAL A-D [Suspect]
     Active Substance: KETOCONAZOLE
     Route: 061
  2. NIZORAL A-D [Suspect]
     Active Substance: KETOCONAZOLE
     Indication: DANDRUFF
     Dosage: NICKEL SIZED ONE TIME FOR 10 MINUTES; PREVIOUS EXPERIENCE:USED NIZORAL TWICE IN ONE WEEK ^LAST WEEK^
     Route: 061

REACTIONS (1)
  - Rash [Not Recovered/Not Resolved]
